FAERS Safety Report 8823210 (Version 3)
Quarter: 2013Q1

REPORT INFORMATION
  Report Type: Report from Study
  Country: CN (occurrence: CN)
  Receive Date: 20121003
  Receipt Date: 20130104
  Transmission Date: 20140127
  Serious: Yes (Other)
  Sender: FDA-Public Use
  Company Number: CN-ROCHE-1137886

PATIENT
  Age: 22 Year
  Sex: Female
  Weight: 53 kg

DRUGS (2)
  1. PEG-INTERFERON ALFA 2A [Suspect]
     Indication: CHRONIC HEPATITIS B
     Dosage: LAST DOSE PRIOR TO SAE WAS ON 09/SEP/2012
     Route: 058
     Dates: start: 20120420, end: 20120916
  2. ADEFOVIR [Suspect]
     Indication: PRODUCT USED FOR UNKNOWN INDICATION
     Dosage: LAST DOSE PRIOR TO SAE WAS ON 14/JUL/2012
     Route: 048
     Dates: start: 20120420

REACTIONS (1)
  - Deafness neurosensory [Recovered/Resolved]
